FAERS Safety Report 25193398 (Version 1)
Quarter: 2025Q2

REPORT INFORMATION
  Report Type: Spontaneous
  Country: CN (occurrence: CN)
  Receive Date: 20250414
  Receipt Date: 20250414
  Transmission Date: 20250717
  Serious: Yes (Hospitalization, Other)
  Sender: ALEXION PHARMACEUTICALS
  Company Number: CN-ASTRAZENECA-202504CHN005394CN

PATIENT
  Age: 54 Year

DRUGS (7)
  1. DAPAGLIFLOZIN [Suspect]
     Active Substance: DAPAGLIFLOZIN
     Indication: Cardiac failure
     Dosage: 2 DAPAGLIFLOZIN TABLETS 10 MG 1 TIME/DAY
  2. SACUBITRIL [Concomitant]
     Active Substance: SACUBITRIL
     Route: 065
  3. METOPROLOL [Concomitant]
     Active Substance: METOPROLOL
     Route: 065
  4. TORSEMIDE [Concomitant]
     Active Substance: TORSEMIDE
     Route: 065
  5. SPIRONOLACTONE [Concomitant]
     Active Substance: SPIRONOLACTONE
     Route: 065
  6. DIGOXIN [Concomitant]
     Active Substance: DIGOXIN
     Route: 065
  7. VERICIGUAT [Concomitant]
     Active Substance: VERICIGUAT
     Route: 065

REACTIONS (5)
  - Acetonaemia [Unknown]
  - Arrhythmia [Unknown]
  - Heart rate increased [Unknown]
  - Oedema peripheral [Unknown]
  - Product use issue [Unknown]
